FAERS Safety Report 11102770 (Version 1)
Quarter: 2015Q2

REPORT INFORMATION
  Report Type: Spontaneous
  Country: US (occurrence: None)
  Receive Date: 20150507
  Receipt Date: 20150507
  Transmission Date: 20150821
  Serious: Yes (Hospitalization)
  Sender: FDA-Public Use
  Company Number: FK201502054

PATIENT
  Age: 27 Year
  Sex: Female

DRUGS (1)
  1. LIDOCAINE (MANUFACTURER UNKNOWN) (LIDOCAINE) (LIDOCAINE) [Suspect]
     Active Substance: LIDOCAINE
     Indication: PAIN MANAGEMENT
     Dosage: OVER 2 HOURS
     Route: 042

REACTIONS (5)
  - Condition aggravated [None]
  - Allodynia [None]
  - Skin discolouration [None]
  - Complex regional pain syndrome [None]
  - Peripheral swelling [None]
